FAERS Safety Report 4931838-X (Version None)
Quarter: 2006Q1

REPORT INFORMATION
  Report Type: 
  Country: None (occurrence: None)
  Receive Date: 20060303
  Receipt Date: 20051223
  Transmission Date: 20060701
  Serious: Yes (Hospitalization)
  Sender: FDA-Public Use
  Company Number: PHHO2005US20032

PATIENT
  Age: 81 Year
  Sex: Female
  Weight: 64 kg

DRUGS (7)
  1. EXJADE [Suspect]
     Indication: BLOOD IRON INCREASED
     Dosage: 1250 MG, QD
     Route: 048
     Dates: start: 20051129, end: 20051223
  2. LASIX [Concomitant]
  3. LISINOPRIL [Concomitant]
     Dosage: 10 MG, QD
     Route: 048
  4. COUMADIN [Concomitant]
  5. MAGNESIUM OXIDE [Concomitant]
     Dosage: 400 MG, QD
     Route: 048
  6. POTASSIUM CHLORIDE [Concomitant]
     Dosage: 10 MEQ, QD
     Route: 048
  7. EPOGEN [Concomitant]

REACTIONS (20)
  - ACUTE PRERENAL FAILURE [None]
  - ATELECTASIS [None]
  - CARDIAC ANEURYSM [None]
  - CARDIAC FAILURE CONGESTIVE [None]
  - DIALYSIS [None]
  - DILATATION ATRIAL [None]
  - DILATATION VENTRICULAR [None]
  - DYSPNOEA [None]
  - EJECTION FRACTION DECREASED [None]
  - FLUID RETENTION [None]
  - HEPATIC CONGESTION [None]
  - HYPOXIA [None]
  - OEDEMA PERIPHERAL [None]
  - ORTHOSTATIC HYPOTENSION [None]
  - PLEURAL EFFUSION [None]
  - RENAL IMPAIRMENT [None]
  - RESTRICTIVE CARDIOMYOPATHY [None]
  - SLEEP APNOEA SYNDROME [None]
  - VASODILATATION [None]
  - VENTRICULAR DYSFUNCTION [None]
